FAERS Safety Report 10222461 (Version 1)
Quarter: 2014Q2

REPORT INFORMATION
  Report Type: Spontaneous
  Country: DE (occurrence: DE)
  Receive Date: 20140606
  Receipt Date: 20140606
  Transmission Date: 20141212
  Serious: Yes (Life-Threatening)
  Sender: FDA-Public Use
  Company Number: DE-TEVA-484620GER

PATIENT
  Age: 48 Year
  Sex: Male

DRUGS (14)
  1. DIAZEPAM [Suspect]
     Route: 048
     Dates: start: 20140104, end: 20140224
  2. DIAZEPAM [Suspect]
     Route: 048
     Dates: start: 20140225
  3. LEPONEX [Suspect]
     Route: 048
     Dates: start: 20140103, end: 20140105
  4. LEPONEX [Suspect]
     Route: 048
     Dates: start: 20140106, end: 20140107
  5. LEPONEX [Suspect]
     Route: 048
     Dates: start: 20140108, end: 20140109
  6. LEPONEX [Suspect]
     Route: 048
     Dates: start: 20140110, end: 20140111
  7. LEPONEX [Suspect]
     Route: 048
     Dates: start: 20140112, end: 20140113
  8. LEPONEX [Suspect]
     Dosage: 125 - 500 MG
     Route: 048
     Dates: start: 20140114, end: 20140128
  9. LEPONEX [Suspect]
     Route: 048
     Dates: start: 20140129
  10. LEPONEX [Suspect]
     Route: 048
     Dates: start: 1990
  11. NEUROCIL [Suspect]
     Route: 048
     Dates: start: 20140120, end: 20140216
  12. QUILONORM RETARD [Concomitant]
     Route: 048
     Dates: start: 20140110, end: 20140115
  13. QUILONORM RETARD [Concomitant]
     Route: 048
     Dates: start: 20140116, end: 20140212
  14. QUILONORM RETARD [Concomitant]
     Route: 048
     Dates: start: 20140213, end: 20140223

REACTIONS (1)
  - Pneumonia [Recovering/Resolving]
